FAERS Safety Report 16924114 (Version 1)
Quarter: 2019Q4

REPORT INFORMATION
  Report Type: Spontaneous
  Country: US (occurrence: US)
  Receive Date: 20191015
  Receipt Date: 20191015
  Transmission Date: 20200122
  Serious: Yes (Life-Threatening, Hospitalization, Disabling)
  Sender: FDA-Public Use
  Company Number: None

PATIENT
  Age: 50 Year
  Sex: Female
  Weight: 59.85 kg

DRUGS (5)
  1. AUBAGIO [Suspect]
     Active Substance: TERIFLUNOMIDE
     Indication: MULTIPLE SCLEROSIS
     Route: 048
     Dates: start: 20170825, end: 20180306
  2. HERCEPTIN [Concomitant]
     Active Substance: TRASTUZUMAB
  3. MULTVITAMIN [Concomitant]
  4. PERJETA [Concomitant]
     Active Substance: PERTUZUMAB
  5. SERTRALINE [Concomitant]
     Active Substance: SERTRALINE HYDROCHLORIDE

REACTIONS (2)
  - Metastases to liver [None]
  - Breast cancer female [None]

NARRATIVE: CASE EVENT DATE: 20180606
